FAERS Safety Report 13040189 (Version 2)
Quarter: 2017Q1

REPORT INFORMATION
  Report Type: Spontaneous
  Country: SE (occurrence: SE)
  Receive Date: 20161219
  Receipt Date: 20170202
  Transmission Date: 20170428
  Serious: Yes (Other)
  Sender: FDA-Public Use
  Company Number: SE-JNJFOC-20161213123

PATIENT
  Age: 3 Decade
  Sex: Female

DRUGS (1)
  1. REMICADE [Suspect]
     Active Substance: INFLIXIMAB
     Indication: CROHN^S DISEASE
     Route: 042
     Dates: end: 20151210

REACTIONS (5)
  - Pain [Unknown]
  - Arthritis [Unknown]
  - Sensory loss [Unknown]
  - Inflammation [Unknown]
  - Hypokinesia [Unknown]

NARRATIVE: CASE EVENT DATE: 20151210
